FAERS Safety Report 8023238-3 (Version None)
Quarter: 2012Q1

REPORT INFORMATION
  Report Type: 
  Country: None (occurrence: None)
  Receive Date: 20120104
  Receipt Date: 20111221
  Transmission Date: 20120608
  Serious: Yes (Other)
  Sender: FDA-Public Use
  Company Number: DE-MYLANLABS-2011S1026089

PATIENT
  Sex: Female

DRUGS (2)
  1. HYDROCHLOROTHIAZIDE [Suspect]
     Indication: HYPERTENSION
     Dates: start: 20111124, end: 20111125
  2. BISOPROLOL [Suspect]
     Indication: HYPERTENSION
     Dates: start: 20110801, end: 20110901

REACTIONS (1)
  - HAEMOLYSIS [None]
